FAERS Safety Report 8403228-9 (Version None)
Quarter: 2012Q2

REPORT INFORMATION
  Report Type: 
  Country: None (occurrence: None)
  Receive Date: 20120601
  Receipt Date: 20120524
  Transmission Date: 20120825
  Serious: Yes (Hospitalization, Disabling, Other)
  Sender: FDA-Public Use
  Company Number: US-MERCK-1203USA03363

PATIENT
  Age: 55 Year
  Sex: Female
  Weight: 68 kg

DRUGS (8)
  1. VITAMIN D (UNSPECIFIED) [Concomitant]
     Route: 065
  2. FOSAMAX [Suspect]
     Indication: OSTEOPOROSIS
     Route: 048
     Dates: start: 19960601, end: 20100601
  3. FLUTICASONE [Concomitant]
     Indication: HYPERSENSITIVITY
     Route: 055
  4. SINGULAIR [Concomitant]
     Indication: HYPERSENSITIVITY
     Route: 048
  5. FOSAMAX [Suspect]
     Route: 048
  6. ACTONEL [Concomitant]
     Indication: OSTEOPOROSIS PROPHYLAXIS
     Route: 065
     Dates: start: 20100601, end: 20101001
  7. CALCIUM (UNSPECIFIED) [Concomitant]
     Route: 065
  8. FOSAMAX [Suspect]
     Indication: OSTEOPENIA
     Route: 048
     Dates: start: 19960601, end: 20100601

REACTIONS (14)
  - STRESS FRACTURE [None]
  - FEMUR FRACTURE [None]
  - OSTEOPOROSIS [None]
  - TIBIA FRACTURE [None]
  - IMPAIRED HEALING [None]
  - UTERINE POLYP [None]
  - HYPERCHOLESTEROLAEMIA [None]
  - ADVERSE EVENT [None]
  - BONE DENSITY DECREASED [None]
  - ROAD TRAFFIC ACCIDENT [None]
  - FALLOPIAN TUBE DISORDER [None]
  - UPPER-AIRWAY COUGH SYNDROME [None]
  - INTERVERTEBRAL DISC DISORDER [None]
  - LOW TURNOVER OSTEOPATHY [None]
